FAERS Safety Report 13877863 (Version 2)
Quarter: 2017Q3

REPORT INFORMATION
  Report Type: Report from Study
  Country: CA (occurrence: CA)
  Receive Date: 20170817
  Receipt Date: 20170912
  Transmission Date: 20171127
  Serious: Yes (Death, Other)
  Sender: FDA-Public Use
  Company Number: CA-REGENERON PHARMACEUTICALS, INC.-2017-20377

PATIENT

DRUGS (2)
  1. EYLEA [Suspect]
     Active Substance: AFLIBERCEPT
     Indication: RETINAL VEIN OCCLUSION
     Dosage: 3 ML, FREQUENCY IS UNKNOWN. TOTAL NUMBER OF INJECTIONS: 3
     Route: 031
     Dates: start: 20170522
  2. EYLEA [Suspect]
     Active Substance: AFLIBERCEPT
     Dosage: 3 ML, FREQUENCY IS UNKNOWN. TOTAL NUMBER OF INJECTIONS: 3
     Route: 031
     Dates: start: 20170613, end: 20170613

REACTIONS (1)
  - Neoplasm malignant [Fatal]
